FAERS Safety Report 21968547 (Version 1)
Quarter: 2023Q1

REPORT INFORMATION
  Report Type: Report from Study
  Country: US (occurrence: US)
  Receive Date: 20230208
  Receipt Date: 20230208
  Transmission Date: 20230418
  Serious: No
  Sender: FDA-Public Use
  Company Number: US-Ipsen Biopharmaceuticals, Inc.-2022-21769

PATIENT
  Age: 46 Year
  Sex: Male

DRUGS (2)
  1. SOMATULINE DEPOT [Suspect]
     Active Substance: LANREOTIDE ACETATE
     Indication: Carcinoid tumour of the small bowel
     Dosage: 120MG
     Route: 058
     Dates: start: 202005
  2. SOMATULINE DEPOT [Suspect]
     Active Substance: LANREOTIDE ACETATE
     Dosage: DOSE DISCONTINUED
     Route: 058
     Dates: start: 202005, end: 2022

REACTIONS (3)
  - COVID-19 [Not Recovered/Not Resolved]
  - Feeling jittery [Recovering/Resolving]
  - Cancer in remission [Not Recovered/Not Resolved]

NARRATIVE: CASE EVENT DATE: 20220101
